FAERS Safety Report 12214816 (Version 5)
Quarter: 2020Q3

REPORT INFORMATION
  Report Type: Spontaneous
  Country: SE (occurrence: SE)
  Receive Date: 20160328
  Receipt Date: 20200805
  Transmission Date: 20201102
  Serious: Yes (Hospitalization, Congenital Anomaly, Other)
  Sender: FDA-Public Use
  Company Number: SE-JNJFOC-20160316954

PATIENT

DRUGS (31)
  1. INFLIXIMAB, RECOMBINANT [Suspect]
     Active Substance: INFLIXIMAB
     Indication: PSORIATIC ARTHROPATHY
  2. ADALIMUMAB [Suspect]
     Active Substance: ADALIMUMAB
     Indication: CROHN^S DISEASE
     Dosage: MOTHERS^ DOSING
     Route: 064
  3. ADALIMUMAB [Suspect]
     Active Substance: ADALIMUMAB
     Indication: RHEUMATOID ARTHRITIS
  4. ADALIMUMAB [Suspect]
     Active Substance: ADALIMUMAB
     Indication: PSORIATIC ARTHROPATHY
  5. CERTOLIZUMAB [Suspect]
     Active Substance: CERTOLIZUMAB
     Indication: PSORIASIS
  6. CERTOLIZUMAB [Suspect]
     Active Substance: CERTOLIZUMAB
     Indication: PSORIATIC ARTHROPATHY
  7. INFLIXIMAB, RECOMBINANT [Suspect]
     Active Substance: INFLIXIMAB
     Indication: ANKYLOSING SPONDYLITIS
  8. ETANERCEPT [Suspect]
     Active Substance: ETANERCEPT
     Indication: COLITIS ULCERATIVE
  9. ETANERCEPT [Suspect]
     Active Substance: ETANERCEPT
     Indication: ANKYLOSING SPONDYLITIS
  10. ADALIMUMAB [Suspect]
     Active Substance: ADALIMUMAB
     Indication: PSORIASIS
  11. INFLIXIMAB, RECOMBINANT [Suspect]
     Active Substance: INFLIXIMAB
     Indication: PSORIASIS
  12. SIMPONI [Suspect]
     Active Substance: GOLIMUMAB
     Indication: COLITIS ULCERATIVE
  13. ADALIMUMAB [Suspect]
     Active Substance: ADALIMUMAB
     Indication: COLITIS ULCERATIVE
  14. ADALIMUMAB [Suspect]
     Active Substance: ADALIMUMAB
     Indication: ANKYLOSING SPONDYLITIS
  15. INFLIXIMAB, RECOMBINANT [Suspect]
     Active Substance: INFLIXIMAB
     Indication: COLITIS ULCERATIVE
     Dosage: MOTHERS^ DOSING
     Route: 064
  16. INFLIXIMAB, RECOMBINANT [Suspect]
     Active Substance: INFLIXIMAB
     Indication: RHEUMATOID ARTHRITIS
  17. CERTOLIZUMAB [Suspect]
     Active Substance: CERTOLIZUMAB
     Indication: ANKYLOSING SPONDYLITIS
  18. SIMPONI [Suspect]
     Active Substance: GOLIMUMAB
     Indication: RHEUMATOID ARTHRITIS
     Route: 058
  19. SIMPONI [Suspect]
     Active Substance: GOLIMUMAB
     Indication: PSORIATIC ARTHROPATHY
  20. SIMPONI [Suspect]
     Active Substance: GOLIMUMAB
     Indication: CROHN^S DISEASE
  21. CERTOLIZUMAB [Suspect]
     Active Substance: CERTOLIZUMAB
     Indication: COLITIS ULCERATIVE
  22. CERTOLIZUMAB [Suspect]
     Active Substance: CERTOLIZUMAB
     Indication: RHEUMATOID ARTHRITIS
  23. SIMPONI [Suspect]
     Active Substance: GOLIMUMAB
     Indication: PSORIASIS
  24. SIMPONI [Suspect]
     Active Substance: GOLIMUMAB
     Indication: ANKYLOSING SPONDYLITIS
  25. ETANERCEPT [Suspect]
     Active Substance: ETANERCEPT
     Indication: RHEUMATOID ARTHRITIS
  26. ETANERCEPT [Suspect]
     Active Substance: ETANERCEPT
     Indication: PSORIATIC ARTHROPATHY
  27. ETANERCEPT [Suspect]
     Active Substance: ETANERCEPT
     Indication: PSORIASIS
  28. CERTOLIZUMAB [Suspect]
     Active Substance: CERTOLIZUMAB
     Indication: CROHN^S DISEASE
     Dosage: MOTHERS^ DOSING
     Route: 064
  29. INFLIXIMAB, RECOMBINANT [Suspect]
     Active Substance: INFLIXIMAB
     Indication: CROHN^S DISEASE
  30. ETANERCEPT [Suspect]
     Active Substance: ETANERCEPT
     Indication: CROHN^S DISEASE
     Dosage: MOTHERS^ DOSING
     Route: 064
  31. METHOTREXATE. [Concomitant]
     Active Substance: METHOTREXATE
     Route: 065

REACTIONS (5)
  - Foetal exposure during pregnancy [Recovered/Resolved]
  - Congenital anomaly [Unknown]
  - Premature baby [Unknown]
  - Infection [Unknown]
  - Small for dates baby [Unknown]
